FAERS Safety Report 22323557 (Version 1)
Quarter: 2023Q2

REPORT INFORMATION
  Report Type: Spontaneous
  Country: US (occurrence: US)
  Receive Date: 20230516
  Receipt Date: 20230516
  Transmission Date: 20230721
  Serious: Yes (Other)
  Sender: FDA-Public Use
  Company Number: US-Accord-355742

PATIENT
  Age: 80 Year
  Sex: Female
  Weight: 86.64 kg

DRUGS (1)
  1. PRAVASTATIN SODIUM [Suspect]
     Active Substance: PRAVASTATIN SODIUM
     Indication: Ischaemic heart disease prophylaxis
     Dosage: 1/2 TABLET DAILY
     Route: 048
     Dates: start: 2022, end: 20230424

REACTIONS (8)
  - Muscle spasms [Recovered/Resolved]
  - Product prescribing issue [Unknown]
  - Incorrect dose administered [Unknown]
  - Basal cell carcinoma [Unknown]
  - Diabetes mellitus [Unknown]
  - Neuropathy peripheral [Unknown]
  - Recalled product administered [Unknown]
  - Arthralgia [Unknown]

NARRATIVE: CASE EVENT DATE: 20230329
